FAERS Safety Report 8803046 (Version 2)
Quarter: 2013Q1

REPORT INFORMATION
  Report Type: Spontaneous
  Country: US (occurrence: US)
  Receive Date: 20120924
  Receipt Date: 20130124
  Transmission Date: 20140127
  Serious: Yes (Hospitalization, Other)
  Sender: FDA-Public Use
  Company Number: US-009507513-1103USA00897

PATIENT
  Sex: 0

DRUGS (4)
  1. FOSAMAX [Suspect]
     Indication: OSTEOPOROSIS
     Dosage: 35 MG, UNK
     Route: 048
     Dates: start: 20010711, end: 20060222
  2. FOSAMAX [Suspect]
     Dosage: 70 MG, QW
     Route: 048
     Dates: start: 20010711, end: 20060222
  3. FOSAMAX [Suspect]
     Dosage: UNK
     Route: 048
     Dates: start: 2000
  4. FOSAMAX [Suspect]
     Indication: PRODUCT USED FOR UNKNOWN INDICATION
     Dosage: UNK
     Route: 048
     Dates: start: 200802

REACTIONS (14)
  - Femur fracture [Unknown]
  - Pain in jaw [Unknown]
  - Jaw disorder [Unknown]
  - Open reduction of fracture [Unknown]
  - Insomnia [Unknown]
  - Back pain [Unknown]
  - Muscle strain [Recovering/Resolving]
  - Bursitis [Recovering/Resolving]
  - Bursitis [Recovering/Resolving]
  - Osteoarthritis [Unknown]
  - Road traffic accident [Unknown]
  - Blister [Unknown]
  - Fall [Unknown]
  - Fall [Unknown]
